FAERS Safety Report 11927338 (Version 1)
Quarter: 2016Q1

REPORT INFORMATION
  Report Type: Spontaneous
  Country: US (occurrence: None)
  Receive Date: 20160115
  Receipt Date: 20160115
  Transmission Date: 20160526
  Serious: Yes (Life-Threatening, Hospitalization)
  Sender: FDA-Public Use
  Company Number: None

PATIENT
  Age: 68 Year
  Sex: Male
  Weight: 103.42 kg

DRUGS (9)
  1. TRADJENTA [Suspect]
     Active Substance: LINAGLIPTIN
     Indication: GLYCOSYLATED HAEMOGLOBIN INCREASED
     Dosage: ONE PILL A DAY 5MG
     Route: 048
     Dates: start: 20150905, end: 20151005
  2. ATENOLOL. [Concomitant]
     Active Substance: ATENOLOL
  3. NOVOLOG MIX INSULIN [Concomitant]
  4. VITAMIN D [Concomitant]
     Active Substance: CHOLECALCIFEROL
  5. METFORMIN [Concomitant]
     Active Substance: METFORMIN HYDROCHLORIDE
  6. ONE A DAY MENS MULTI VITAMEN [Concomitant]
  7. CULTURELLE PROBIOTIC [Concomitant]
  8. LOSARTAN. [Concomitant]
     Active Substance: LOSARTAN
  9. SIMVASTATIN. [Concomitant]
     Active Substance: SIMVASTATIN

REACTIONS (6)
  - Constipation [None]
  - Abdominal distension [None]
  - Abdominal pain [None]
  - Blood glucose decreased [None]
  - Blood lactic acid increased [None]
  - White blood cell count increased [None]

NARRATIVE: CASE EVENT DATE: 20151005
